FAERS Safety Report 12409173 (Version 1)
Quarter: 2016Q2

REPORT INFORMATION
  Report Type: Spontaneous
  Country: IT (occurrence: IT)
  Receive Date: 20160526
  Receipt Date: 20160526
  Transmission Date: 20160815
  Serious: Yes (Other)
  Sender: FDA-Public Use
  Company Number: IT-WATSON-2016-10955

PATIENT
  Age: 32 Month
  Sex: Male

DRUGS (24)
  1. CYTARABINE (UNKNOWN) [Suspect]
     Active Substance: CYTARABINE
     Indication: POST TRANSPLANT LYMPHOPROLIFERATIVE DISORDER
     Dosage: UNK, BLOCK AA
     Route: 037
  2. CYTARABINE (UNKNOWN) [Suspect]
     Active Substance: CYTARABINE
     Dosage: UNK, BLOCK BB
     Route: 037
  3. IFOSFAMIDE. [Suspect]
     Active Substance: IFOSFAMIDE
     Indication: POST TRANSPLANT LYMPHOPROLIFERATIVE DISORDER
     Dosage: FROM 600 TO 800 MG/M2 PER DAY X 5, BLOCK AA
     Route: 065
  4. DEXAMETHASONE (UNKNOWN) [Suspect]
     Active Substance: DEXAMETHASONE
     Indication: POST TRANSPLANT LYMPHOPROLIFERATIVE DISORDER
     Dosage: 20 MG/M2 PER DAY X 5, BLOCK CC
     Route: 065
  5. DEXAMETHASONE (UNKNOWN) [Suspect]
     Active Substance: DEXAMETHASONE
     Dosage: 10 MG/M2 PER DAY X 5, BLOCK BB
     Route: 065
  6. VINDESINE [Suspect]
     Active Substance: VINDESINE
     Indication: POST TRANSPLANT LYMPHOPROLIFERATIVE DISORDER
     Dosage: 3 MG/M2, UNKNOWN, BLOCK CC
     Route: 065
  7. ETOPOSIDE (UNKNOWN) [Suspect]
     Active Substance: ETOPOSIDE
     Indication: POST TRANSPLANT LYMPHOPROLIFERATIVE DISORDER
     Dosage: 100 MG/M2 Q 12 HOURS X 4, BLOCK CC
     Route: 065
  8. METHYLPREDNISOLONE ACETATE (WATSON LABORATORIES) [Suspect]
     Active Substance: METHYLPREDNISOLONE ACETATE
     Indication: POST TRANSPLANT LYMPHOPROLIFERATIVE DISORDER
     Dosage: UNK, BLOCK AA
     Route: 037
  9. METHYLPREDNISOLONE ACETATE (WATSON LABORATORIES) [Suspect]
     Active Substance: METHYLPREDNISOLONE ACETATE
     Dosage: UNK, BLOCK CC
     Route: 037
  10. CYTARABINE (UNKNOWN) [Suspect]
     Active Substance: CYTARABINE
     Dosage: UNK, BLOCK CC
     Route: 037
  11. METHOTREXATE (METHOTREXATE SODIUM) [Suspect]
     Active Substance: METHOTREXATE SODIUM
     Dosage: UNK, BLOCK BB
     Route: 037
  12. METHOTREXATE (METHOTREXATE SODIUM) [Suspect]
     Active Substance: METHOTREXATE SODIUM
     Dosage: FROM 1.5 TO 3 G/M2, BLOCK BB
     Route: 065
  13. DAUNOMYCIN                         /00128201/ [Suspect]
     Active Substance: DAUNORUBICIN
     Indication: POST TRANSPLANT LYMPHOPROLIFERATIVE DISORDER
     Dosage: FROM 20 TO 25 MG/M2 PER DAY X 2, BLOCK BB
     Route: 065
  14. VINCRISTINE (UNKNOWN) [Suspect]
     Active Substance: VINCRISTINE
     Indication: POST TRANSPLANT LYMPHOPROLIFERATIVE DISORDER
     Dosage: 1.5 MG/M2, UNK, BLOCK AA
     Route: 065
  15. VINCRISTINE (UNKNOWN) [Suspect]
     Active Substance: VINCRISTINE
     Dosage: 1.5 MG/M2, UNKNOWN, BLOCK BB
     Route: 065
  16. METHOTREXATE (METHOTREXATE SODIUM) [Suspect]
     Active Substance: METHOTREXATE SODIUM
     Indication: POST TRANSPLANT LYMPHOPROLIFERATIVE DISORDER
     Dosage: UNK, BLOCK AA
     Route: 037
  17. METHYLPREDNISOLONE ACETATE (WATSON LABORATORIES) [Suspect]
     Active Substance: METHYLPREDNISOLONE ACETATE
     Dosage: UNK, BLOCK BB
     Route: 037
  18. CYTARABINE (UNKNOWN) [Suspect]
     Active Substance: CYTARABINE
     Dosage: FROM 120 TO 150 MG/M2 Q 12 HOURS X 4, BLOCK AA
     Route: 065
  19. METHOTREXATE (METHOTREXATE SODIUM) [Suspect]
     Active Substance: METHOTREXATE SODIUM
     Dosage: FROM 1.5 TO 3 G/M2, BLOCK AA
     Route: 065
  20. CYTARABINE (UNKNOWN) [Suspect]
     Active Substance: CYTARABINE
     Dosage: 3000 MG/M2,Q12H X4, BLOCK CC
  21. ETOPOSIDE (UNKNOWN) [Suspect]
     Active Substance: ETOPOSIDE
     Dosage: FROM 80 TO 100 MG/M2 PER DAY X 2, BLOCK AA
     Route: 065
  22. METHOTREXATE (METHOTREXATE SODIUM) [Suspect]
     Active Substance: METHOTREXATE SODIUM
     Route: 037
  23. DEXAMETHASONE (UNKNOWN) [Suspect]
     Active Substance: DEXAMETHASONE
     Dosage: 10 MG/M2 PER DAY X 5, BLOCK AA
     Route: 065
  24. CYCLOPHOSPHAMIDE. [Suspect]
     Active Substance: CYCLOPHOSPHAMIDE
     Indication: POST TRANSPLANT LYMPHOPROLIFERATIVE DISORDER
     Dosage: FROM 160 TO 200 MG/M2 PER DAY X 5, BLOCK BB
     Route: 065

REACTIONS (3)
  - Acute kidney injury [Unknown]
  - Nervous system disorder [Unknown]
  - Neurotoxicity [Unknown]
